FAERS Safety Report 9370505 (Version 1)
Quarter: 2013Q2

REPORT INFORMATION
  Report Type: Spontaneous
  Country: US (occurrence: US)
  Receive Date: 20130626
  Receipt Date: 20130626
  Transmission Date: 20140414
  Serious: Yes (Death)
  Sender: FDA-Public Use
  Company Number: US-GLAXOSMITHKLINE-A1028508A

PATIENT
  Age: 76 Year
  Sex: Female

DRUGS (8)
  1. HYCAMTIN [Suspect]
     Indication: LUNG NEOPLASM MALIGNANT
     Dosage: 2MG CYCLIC
     Route: 048
     Dates: start: 20130111
  2. METOPROLOL SUCCINATE [Concomitant]
  3. DIGOXIN [Concomitant]
  4. PENTOXIFYLLINE [Concomitant]
  5. DILTIAZEM [Concomitant]
  6. LEVOXYL [Concomitant]
  7. ATORVASTATIN [Concomitant]
  8. CALCIUM [Concomitant]

REACTIONS (1)
  - Death [Fatal]
